FAERS Safety Report 12323899 (Version 1)
Quarter: 2016Q2

REPORT INFORMATION
  Report Type: Spontaneous
  Country: DE (occurrence: DE)
  Receive Date: 20160502
  Receipt Date: 20160502
  Transmission Date: 20160815
  Serious: Yes (Disabling)
  Sender: FDA-Public Use
  Company Number: DE-B.I. PHARMACEUTICALS,INC./RIDGEFIELD-2016-BI-19003DE

PATIENT
  Age: 73 Year
  Sex: Male
  Weight: 60 kg

DRUGS (6)
  1. OXICODON [Concomitant]
     Indication: INTESTINAL RESECTION
     Dosage: 320 MG
     Route: 048
     Dates: start: 2007, end: 2016
  2. DOGMATIL FORTE [Concomitant]
     Active Substance: SULPIRIDE
     Indication: STRESS AT WORK
     Dosage: 0.25 ANZ
     Route: 048
     Dates: start: 1963, end: 2016
  3. BLEMAREN N [Concomitant]
     Indication: PRODUCT USED FOR UNKNOWN INDICATION
     Route: 065
  4. PRADAXA [Suspect]
     Active Substance: DABIGATRAN ETEXILATE MESYLATE
     Indication: ATRIAL FIBRILLATION
     Dosage: 300 MG
     Route: 048
     Dates: start: 20160316, end: 20160323
  5. FENATYL [Concomitant]
     Active Substance: FENTANYL
     Indication: INTESTINAL RESECTION
     Dosage: FORMULATION: PLASTER TRANSDERM THERAP SYSTEM; STRENGTH 100 PG/H
     Route: 065
     Dates: start: 2007, end: 2016
  6. CORDAREX [Concomitant]
     Active Substance: AMIODARONE
     Indication: ARRHYTHMIA
     Dosage: 0.5 ANZ
     Route: 048
     Dates: start: 1998, end: 2016

REACTIONS (2)
  - Insomnia [Not Recovered/Not Resolved]
  - Apathy [Not Recovered/Not Resolved]

NARRATIVE: CASE EVENT DATE: 20160317
